FAERS Safety Report 10674023 (Version 6)
Quarter: 2015Q3

REPORT INFORMATION
  Report Type: Report from Study
  Country: DE (occurrence: DE)
  Receive Date: 20141224
  Receipt Date: 20150730
  Transmission Date: 20151125
  Serious: Yes (Death, Hospitalization, Other)
  Sender: FDA-Public Use
  Company Number: DE-CELGENE-DEU-2014103324

PATIENT
  Age: 55 Year
  Sex: Male
  Weight: 77 kg

DRUGS (10)
  1. DEXAMETHASONE. [Suspect]
     Active Substance: DEXAMETHASONE
     Indication: PLASMA CELL MYELOMA
     Route: 065
     Dates: start: 20140918, end: 20141023
  2. MOXONIDIN [Concomitant]
     Active Substance: MOXONIDINE
     Indication: HYPERTENSION
     Route: 048
     Dates: end: 20141217
  3. MOXONIDIN [Concomitant]
     Active Substance: MOXONIDINE
     Route: 048
     Dates: end: 20150108
  4. RAMIPRIL. [Concomitant]
     Active Substance: RAMIPRIL
     Indication: HYPERTENSION
     Route: 048
     Dates: end: 20141217
  5. METOPROLOL [Concomitant]
     Active Substance: METOPROLOL
     Route: 048
     Dates: end: 20150108
  6. RAMIPRIL. [Concomitant]
     Active Substance: RAMIPRIL
     Route: 048
     Dates: end: 20150108
  7. ENDOXAN [Suspect]
     Active Substance: CYCLOPHOSPHAMIDE
     Indication: PLASMA CELL MYELOMA
     Route: 041
     Dates: start: 20141023, end: 20141023
  8. METOPROLOL [Concomitant]
     Active Substance: METOPROLOL
     Indication: HYPERTENSION
     Route: 048
     Dates: end: 20141217
  9. POMALIDOMIDE [Suspect]
     Active Substance: POMALIDOMIDE
     Indication: PLASMA CELL MYELOMA
     Route: 048
     Dates: start: 20140919
  10. POMALIDOMIDE [Suspect]
     Active Substance: POMALIDOMIDE
     Route: 048
     Dates: end: 20141027

REACTIONS (9)
  - Renal failure [Recovered/Resolved with Sequelae]
  - Pneumonia [Recovered/Resolved]
  - Hypertension [Recovered/Resolved with Sequelae]
  - Dehydration [Recovered/Resolved]
  - Blood creatinine increased [Recovered/Resolved with Sequelae]
  - Pneumonia [Recovered/Resolved]
  - Dehydration [Recovered/Resolved]
  - Pneumonia [Fatal]
  - Acute kidney injury [Not Recovered/Not Resolved]

NARRATIVE: CASE EVENT DATE: 20141005
